FAERS Safety Report 23830212 (Version 1)
Quarter: 2024Q2

REPORT INFORMATION
  Report Type: Report from Study
  Country: CA (occurrence: CA)
  Receive Date: 20240508
  Receipt Date: 20240508
  Transmission Date: 20240715
  Serious: Yes (Hospitalization, Other)
  Sender: FDA-Public Use
  Company Number: CA-SA-SAC20230801000785

PATIENT
  Age: 60 Year
  Sex: Male

DRUGS (22)
  1. BELUMOSUDIL MESYLATE [Suspect]
     Active Substance: BELUMOSUDIL MESYLATE
     Indication: Chronic graft versus host disease
     Dosage: 200 MG, QD
     Route: 048
     Dates: start: 20221216
  2. ANORO ELLIPTA [Concomitant]
     Active Substance: UMECLIDINIUM BROMIDE\VILANTEROL TRIFENATATE
     Dosage: UNK, QD (1 PUFF PER DAY; QD)
  3. AZITHROMYCIN [Concomitant]
     Active Substance: AZITHROMYCIN
     Dosage: 250 MG, QD
  4. CALCIUM [Concomitant]
     Active Substance: CALCIUM
     Dosage: 500 MG, QD
  5. JAKAFI [Concomitant]
     Active Substance: RUXOLITINIB
     Dosage: 25 MG, BID
  6. JAKAFI [Concomitant]
     Active Substance: RUXOLITINIB
     Dosage: 15 MG, BID
     Route: 065
  7. MONTELUKAST [Concomitant]
     Active Substance: MONTELUKAST SODIUM
     Dosage: 10 MG, QD
  8. MYFORTIC [Concomitant]
     Active Substance: MYCOPHENOLATE SODIUM
     Dosage: 900 MG, BID
  9. NITROFURANTOIN [Concomitant]
     Active Substance: NITROFURANTOIN
     Dosage: 100 MG, BID
  10. PENICILLIN V POTASSIUM [Concomitant]
     Active Substance: PENICILLIN V POTASSIUM
     Dosage: 300 MG, BID
  11. PENICILLIN V POTASSIUM [Concomitant]
     Active Substance: PENICILLIN V POTASSIUM
     Dosage: 300 MG 2X/DAY
  12. PREDNISONE [Concomitant]
     Active Substance: PREDNISONE
     Dosage: 45 MG, QD
  13. PREDNISONE [Concomitant]
     Active Substance: PREDNISONE
     Dosage: 25 MG, QD
  14. RISEDRONATE SODIUM [Concomitant]
     Active Substance: RISEDRONATE SODIUM
     Dosage: 35 MG, QW
  15. ROSUVASTATIN [Concomitant]
     Active Substance: ROSUVASTATIN
     Dosage: 5 MG, QD
  16. SULFAMETHOXAZOLE\TRIMETHOPRIM [Concomitant]
     Active Substance: SULFAMETHOXAZOLE\TRIMETHOPRIM
     Dosage: UNK, QW;800MG/160MG
  17. CUVITRU [Concomitant]
     Active Substance: HUMAN IMMUNOGLOBULIN G
     Dosage: QW
  18. URSODIOL [Concomitant]
     Active Substance: URSODIOL
     Dosage: 500 MG, TID
  19. VALGANCICLOVIR [Concomitant]
     Active Substance: VALGANCICLOVIR
     Dosage: 450 MG, BID
  20. EPREX [Concomitant]
     Active Substance: ERYTHROPOIETIN
     Dosage: 20000 IU, QW
  21. VIT D [VITAMIN D NOS] [Concomitant]
     Dosage: 1000 IU, QD
  22. TRIMETHOPRIM [Concomitant]
     Active Substance: TRIMETHOPRIM
     Dosage: 500 MG, QD

REACTIONS (10)
  - Near death experience [Unknown]
  - Pulmonary function test decreased [Unknown]
  - Muscle atrophy [Recovering/Resolving]
  - Weight decreased [Unknown]
  - Mobility decreased [Recovering/Resolving]
  - Oral infection [Recovered/Resolved]
  - Haemoglobin abnormal [Recovered/Resolved]
  - Platelet disorder [Recovered/Resolved]
  - White blood cell disorder [Recovered/Resolved]
  - Neutrophil count abnormal [Recovered/Resolved]

NARRATIVE: CASE EVENT DATE: 20230101
